FAERS Safety Report 9704347 (Version 3)
Quarter: 2013Q4

REPORT INFORMATION
  Report Type: Spontaneous
  Country: US (occurrence: US)
  Receive Date: 20131122
  Receipt Date: 20131206
  Transmission Date: 20140711
  Serious: Yes (Other)
  Sender: FDA-Public Use
  Company Number: US-PFIZER INC-2009226015

PATIENT
  Age: 48 Year
  Sex: Female
  Weight: 90.7 kg

DRUGS (3)
  1. LYRICA [Suspect]
     Indication: SPINAL PAIN
     Dosage: 300 MG, 3X/DAY
  2. CORTISONE ACETATE [Suspect]
     Dosage: UNK
  3. LODINE [Suspect]
     Dosage: UNK

REACTIONS (5)
  - Spinal disorder [Unknown]
  - Apparent death [Unknown]
  - Overdose [Not Recovered/Not Resolved]
  - Depression [Unknown]
  - Urticaria [Unknown]
